FAERS Safety Report 7903228-9 (Version None)
Quarter: 2011Q4

REPORT INFORMATION
  Report Type: 
  Country: None (occurrence: None)
  Receive Date: 20111107
  Receipt Date: 20111025
  Transmission Date: 20120403
  Serious: Yes (Hospitalization)
  Sender: FDA-Public Use
  Company Number: 2011SP050658

PATIENT
  Age: 26 Year
  Sex: Female

DRUGS (3)
  1. BETAMETHASONE [Suspect]
     Indication: MATERNAL THERAPY TO ENHANCE FOETAL LUNG MATURITY
  2. BETAMETHASONE [Suspect]
     Indication: PREMATURE LABOUR
  3. TERBUTALINE [Concomitant]

REACTIONS (10)
  - BLOOD GLUCOSE DECREASED [None]
  - CONTINUOUS HAEMODIAFILTRATION [None]
  - AGITATION [None]
  - DYSTONIA [None]
  - MENTAL STATUS CHANGES [None]
  - COMA [None]
  - CHEYNE-STOKES RESPIRATION [None]
  - UNRESPONSIVE TO STIMULI [None]
  - HYPERAMMONAEMIA [None]
  - MATERNAL EXPOSURE DURING PREGNANCY [None]
